FAERS Safety Report 21113702 (Version 1)
Quarter: 2022Q3

REPORT INFORMATION
  Report Type: Spontaneous
  Country: IE (occurrence: IE)
  Receive Date: 20220721
  Receipt Date: 20220721
  Transmission Date: 20221027
  Serious: Yes (Death, Other)
  Sender: FDA-Public Use
  Company Number: IE-PFIZER INC-PV202200022050

PATIENT
  Sex: Male

DRUGS (1)
  1. AVIBACTAM SODIUM\CEFTAZIDIME [Suspect]
     Active Substance: AVIBACTAM SODIUM\CEFTAZIDIME
     Indication: Urinary tract infection
     Dosage: UNK (3 DOSES)

REACTIONS (3)
  - Death [Fatal]
  - Urinary tract infection [Unknown]
  - Condition aggravated [Unknown]
